FAERS Safety Report 23512406 (Version 1)
Quarter: 2024Q1

REPORT INFORMATION
  Report Type: Report from Study
  Country: US (occurrence: US)
  Receive Date: 20240212
  Receipt Date: 20240212
  Transmission Date: 20240409
  Serious: Yes (Other)
  Sender: FDA-Public Use
  Company Number: US-JAZZ PHARMACEUTICALS-2024-US-002386

PATIENT
  Age: 42 Year
  Sex: Female

DRUGS (5)
  1. SODIUM OXYBATE [Suspect]
     Active Substance: SODIUM OXYBATE
     Indication: Narcolepsy
     Dosage: UNK
  2. SODIUM OXYBATE [Suspect]
     Active Substance: SODIUM OXYBATE
     Indication: Cataplexy
  3. SODIUM OXYBATE [Suspect]
     Active Substance: SODIUM OXYBATE
     Indication: Somnolence
  4. ADDERALL [Concomitant]
     Active Substance: AMPHETAMINE ASPARTATE\AMPHETAMINE SULFATE\DEXTROAMPHETAMINE SACCHARATE\DEXTROAMPHETAMINE SULFATE
     Dosage: 0000
     Dates: start: 20240117
  5. OPZELURA [Concomitant]
     Active Substance: RUXOLITINIB PHOSPHATE
     Dosage: UNK
     Dates: start: 20230801

REACTIONS (3)
  - Spinal fusion surgery [Recovering/Resolving]
  - Fall [Unknown]
  - Fractured coccyx [Unknown]

NARRATIVE: CASE EVENT DATE: 20231220
